FAERS Safety Report 7802565-6 (Version None)
Quarter: 2011Q4

REPORT INFORMATION
  Report Type: 
  Country: None (occurrence: None)
  Receive Date: 20111007
  Receipt Date: 20110929
  Transmission Date: 20120403
  Serious: Yes (Hospitalization)
  Sender: FDA-Public Use
  Company Number: JP-GENZYME-RENA-1001259

PATIENT
  Sex: Male

DRUGS (1)
  1. RENAGEL [Suspect]
     Indication: GLOMERULONEPHRITIS CHRONIC
     Dosage: 1.5 G, QD
     Route: 048
     Dates: start: 20070831, end: 20091227

REACTIONS (6)
  - DIVERTICULUM INTESTINAL [None]
  - CONSTIPATION [None]
  - PAINFUL DEFAECATION [None]
  - ASCITES [None]
  - LARGE INTESTINE PERFORATION [None]
  - INTESTINAL MUCOSAL HYPERTROPHY [None]
